FAERS Safety Report 10675662 (Version 1)
Quarter: 2014Q4

REPORT INFORMATION
  Report Type: Spontaneous
  Country: PL (occurrence: PL)
  Receive Date: 20141224
  Receipt Date: 20141224
  Transmission Date: 20150529
  Serious: Yes (Hospitalization, Other)
  Sender: FDA-Public Use
  Company Number: PL-WATSON-2014-27316

PATIENT
  Age: 36 Year
  Sex: Female

DRUGS (5)
  1. DEXAMETHASONE (UNKNOWN) [Suspect]
     Active Substance: DEXAMETHASONE
     Indication: DERMATITIS ATOPIC
     Dosage: 8 MG, DAILY
     Route: 030
  2. DEXAMETHASONE (UNKNOWN) [Suspect]
     Active Substance: DEXAMETHASONE
     Dosage: 6 MG, DAILY
     Route: 030
  3. BILASTINE [Concomitant]
     Active Substance: BILASTINE
     Indication: DERMATITIS ATOPIC
     Dosage: 20 MG, DAILY
     Route: 065
  4. DEXAMETHASONE (UNKNOWN) [Suspect]
     Active Substance: DEXAMETHASONE
     Dosage: 4 MG, DAILY
     Route: 030
  5. LEVOCETIRIZINE [Concomitant]
     Active Substance: LEVOCETIRIZINE
     Indication: DERMATITIS ATOPIC
     Dosage: 5 MG, DAILY
     Route: 065

REACTIONS (1)
  - Mania [Recovered/Resolved]
